FAERS Safety Report 20315867 (Version 1)
Quarter: 2022Q1

REPORT INFORMATION
  Report Type: Other
  Country: US (occurrence: None)
  Receive Date: 20220110
  Receipt Date: 20220110
  Transmission Date: 20220423
  Serious: No
  Sender: FDA-Public Use
  Company Number: US-ROCHE-2889206

PATIENT
  Age: 33 Year
  Sex: Female

DRUGS (8)
  1. RITUXIMAB [Suspect]
     Active Substance: RITUXIMAB
     Indication: Rosai-Dorfman syndrome
     Route: 065
     Dates: start: 200502, end: 200804
  2. METHOTREXATE [Concomitant]
     Active Substance: METHOTREXATE
  3. MERCAPTOPURINE [Concomitant]
     Active Substance: MERCAPTOPURINE
  4. VINBLASTINE [Concomitant]
     Active Substance: VINBLASTINE
  5. THALIDOMIDE [Concomitant]
     Active Substance: THALIDOMIDE
  6. PREDNISONE [Concomitant]
     Active Substance: PREDNISONE
  7. CLADRIBINE [Concomitant]
     Active Substance: CLADRIBINE
  8. IMATINIB [Concomitant]
     Active Substance: IMATINIB
     Dates: start: 200804, end: 202009

REACTIONS (2)
  - Off label use [Unknown]
  - No adverse event [Unknown]
